FAERS Safety Report 5517152-2 (Version None)
Quarter: 2007Q4

REPORT INFORMATION
  Report Type: 
  Country: None (occurrence: None)
  Receive Date: 20071114
  Receipt Date: 20071030
  Transmission Date: 20080405
  Serious: Yes (Other)
  Sender: FDA-Public Use
  Company Number: B0494751A

PATIENT
  Age: 59 Year
  Sex: Male

DRUGS (5)
  1. BECOTIDE 250 [Suspect]
     Indication: ASTHMA
     Dosage: 2PUFF TWICE PER DAY
     Route: 055
  2. FLECAINIDE ACETATE [Concomitant]
     Dosage: 200MG PER DAY
     Route: 048
  3. PERINDOPRIL ERBUMINE [Concomitant]
     Dosage: 4MG PER DAY
     Route: 048
  4. CETIRIZINE HCL [Concomitant]
     Dosage: 5MG PER DAY
  5. ALLERGODIL [Concomitant]
     Route: 045

REACTIONS (5)
  - ECCHYMOSIS [None]
  - HAEMATOMA [None]
  - SKIN FRAGILITY [None]
  - WOUND [None]
  - WOUND HAEMORRHAGE [None]
